FAERS Safety Report 10051590 (Version 2)
Quarter: 2014Q2

REPORT INFORMATION
  Report Type: Spontaneous
  Country: US (occurrence: US)
  Receive Date: 20140401
  Receipt Date: 20140430
  Transmission Date: 20141212
  Serious: Yes (Other)
  Sender: FDA-Public Use
  Company Number: US-FRI-1000065876

PATIENT
  Age: 66 Year
  Sex: Male

DRUGS (17)
  1. VIIBRYD [Suspect]
     Indication: DEPRESSION
     Dosage: 10 MG
     Route: 048
     Dates: start: 20140311, end: 20140317
  2. VIIBRYD [Suspect]
     Indication: ANXIETY
     Dosage: 20 MG
     Route: 048
     Dates: start: 20140318, end: 20140324
  3. VIIBRYD [Suspect]
     Indication: DEPRESSION
     Dosage: 40 MG
     Route: 048
     Dates: start: 20140325, end: 20140326
  4. VIIBRYD [Suspect]
     Indication: ANXIETY
     Dosage: 20 MG
     Route: 048
     Dates: start: 20140327, end: 20140329
  5. VIIBRYD [Suspect]
     Dosage: 10 MG
     Route: 048
     Dates: start: 20140330, end: 20140331
  6. EVACETRAPIB [Suspect]
     Indication: BLOOD CHOLESTEROL INCREASED
     Dates: end: 201404
  7. AMLODIPINE [Concomitant]
     Indication: HYPERTENSION
  8. CRESTOR [Concomitant]
     Indication: BLOOD CHOLESTEROL INCREASED
  9. COMBIVENT [Concomitant]
     Indication: CHRONIC OBSTRUCTIVE PULMONARY DISEASE
  10. COMBIVENT [Concomitant]
     Indication: EMPHYSEMA
  11. LISINOPRIL [Concomitant]
     Indication: HYPERTENSION
  12. ASPIRIN [Concomitant]
     Dosage: 325 MG
  13. ASPIRIN [Concomitant]
     Dosage: 81 MG
  14. ADVAIR [Concomitant]
     Indication: CHRONIC OBSTRUCTIVE PULMONARY DISEASE
  15. ADVAIR [Concomitant]
     Indication: EMPHYSEMA
  16. SPIRIVA [Concomitant]
     Indication: CHRONIC OBSTRUCTIVE PULMONARY DISEASE
  17. SPIRIVA [Concomitant]
     Indication: EMPHYSEMA

REACTIONS (6)
  - Blood pressure increased [Recovered/Resolved]
  - Feeling abnormal [Not Recovered/Not Resolved]
  - Drug effect decreased [Recovered/Resolved]
  - Asthenia [Not Recovered/Not Resolved]
  - Pain in extremity [Not Recovered/Not Resolved]
  - Therapeutic response changed [Unknown]
